FAERS Safety Report 4383220-4 (Version None)
Quarter: 2004Q2

REPORT INFORMATION
  Report Type: 
  Country: None (occurrence: None)
  Receive Date: 20040618
  Receipt Date: 20040601
  Transmission Date: 20050107
  Serious: Yes (Other)
  Sender: FDA-Public Use
  Company Number: USA040668908

PATIENT
  Age: 46 Year
  Sex: Male
  Weight: 78 kg

DRUGS (1)
  1. HUMULIN 70/30 [Suspect]
     Dosage: 20 U DAY
     Dates: start: 19920101

REACTIONS (5)
  - LOSS OF CONSCIOUSNESS [None]
  - MEDICATION ERROR [None]
  - PHARMACEUTICAL PRODUCT COMPLAINT [None]
  - RENAL ABSCESS [None]
  - RENAL FAILURE [None]
